FAERS Safety Report 13078969 (Version 1)
Quarter: 2017Q1

REPORT INFORMATION
  Report Type: Spontaneous
  Country: FR (occurrence: FR)
  Receive Date: 20170102
  Receipt Date: 20170102
  Transmission Date: 20170428
  Serious: Yes (Other)
  Sender: FDA-Public Use
  Company Number: FR-009507513-1612FRA011818

PATIENT

DRUGS (2)
  1. OXALIPLATIN. [Suspect]
     Active Substance: OXALIPLATIN
     Indication: LUNG CANCER METASTATIC
  2. TEMODAL [Suspect]
     Active Substance: TEMOZOLOMIDE
     Indication: LUNG CANCER METASTATIC
     Dosage: 150 MG/M2/DAY FOR 5 DAYS (D1 = D28), ESCALATED TO 200MG/M2/DAY IF WELL TOLERATED
     Route: 048

REACTIONS (1)
  - Poisoning [Unknown]
